FAERS Safety Report 24726688 (Version 1)
Quarter: 2024Q4

REPORT INFORMATION
  Report Type: Spontaneous
  Country: US (occurrence: US)
  Receive Date: 20241212
  Receipt Date: 20241212
  Transmission Date: 20250115
  Serious: No
  Sender: MERCK
  Company Number: US-009507513-2412USA001702

PATIENT
  Sex: Female

DRUGS (2)
  1. VERQUVO [Suspect]
     Active Substance: VERICIGUAT
     Indication: Cardiac failure
     Dosage: UNK, QD
     Route: 048
  2. ENTRESTO [Concomitant]
     Active Substance: SACUBITRIL\VALSARTAN

REACTIONS (1)
  - Headache [Recovered/Resolved]
